FAERS Safety Report 6456201-4 (Version None)
Quarter: 2009Q4

REPORT INFORMATION
  Report Type: 
  Country: None (occurrence: None)
  Receive Date: 20091125
  Receipt Date: 20091111
  Transmission Date: 20100525
  Serious: Yes (Other)
  Sender: FDA-Public Use
  Company Number: GB-ELI_LILLY_AND_COMPANY-GB200712000890

PATIENT
  Sex: Female

DRUGS (5)
  1. EVISTA [Suspect]
     Indication: OSTEOPOROSIS
     Dosage: 60 MG, UNKNOWN
     Route: 048
     Dates: start: 20070823, end: 20070910
  2. CALCICHEW-D3 FORTE [Concomitant]
     Indication: OSTEOPOROSIS
     Dosage: 2 D/F, DAILY (1/D)
     Route: 048
     Dates: start: 20060427
  3. ZODOL [Concomitant]
     Indication: PAIN
     Dosage: 1-2 QDS
     Route: 048
     Dates: start: 20050101
  4. QUININE [Concomitant]
     Indication: MUSCLE SPASMS
     Dosage: UNK, AS NEEDED
     Route: 048
     Dates: start: 20060101
  5. RANITIDINE [Concomitant]
     Indication: DYSPEPSIA
     Dosage: 150 MG, DAILY (1/D)
     Route: 048
     Dates: start: 20020101

REACTIONS (5)
  - ALOPECIA [None]
  - DRY SKIN [None]
  - MUSCLE SPASMS [None]
  - PRURITUS [None]
  - SLEEP DISORDER [None]
